FAERS Safety Report 20037045 (Version 2)
Quarter: 2022Q2

REPORT INFORMATION
  Report Type: Report from Study
  Country: US (occurrence: US)
  Receive Date: 20211105
  Receipt Date: 20220510
  Transmission Date: 20220721
  Serious: No
  Sender: FDA-Public Use
  Company Number: US-NOVARTISTESTPH-NVSC2021US252768

PATIENT
  Sex: Female

DRUGS (1)
  1. ENTRESTO [Suspect]
     Active Substance: SACUBITRIL\VALSARTAN
     Indication: Product used for unknown indication
     Dosage: 2 DF, BID (97/103 MG)
     Route: 048

REACTIONS (4)
  - Heart rate decreased [Recovering/Resolving]
  - Swelling [Unknown]
  - Hypotension [Unknown]
  - Asthenia [Unknown]
